FAERS Safety Report 5425774-2 (Version None)
Quarter: 2007Q3

REPORT INFORMATION
  Report Type: 
  Country: None (occurrence: None)
  Receive Date: 20070825
  Receipt Date: 20070726
  Transmission Date: 20080115
  Serious: Yes (Hospitalization)
  Sender: FDA-Public Use
  Company Number: CH-SHR-CH-2007-025128

PATIENT
  Sex: Female
  Weight: 59.5 kg

DRUGS (5)
  1. GADOVIST 1.0 [Suspect]
     Indication: ANGIOGRAM
     Dosage: 15 ML, 1 DOSE
     Route: 042
     Dates: start: 20051025, end: 20051025
  2. DOTAREM [Suspect]
     Indication: ANGIOGRAM
     Dosage: 20 ML, 1 DOSE
     Route: 042
     Dates: start: 20040128, end: 20040128
  3. DOTAREM [Suspect]
     Dosage: 20 ML, 1 DOSE
     Dates: start: 20040809, end: 20040809
  4. DOTAREM [Suspect]
     Dosage: 20 ML, 1 DOSE
     Dates: start: 20050706, end: 20050706
  5. IOPAMIRO                                /NET/ [Concomitant]
     Indication: ANGIOGRAM
     Dosage: 30 ML, UNK
     Dates: start: 20051102, end: 20051102

REACTIONS (1)
  - NEPHROGENIC SYSTEMIC FIBROSIS [None]
